FAERS Safety Report 20825008 (Version 1)
Quarter: 2022Q2

REPORT INFORMATION
  Report Type: Spontaneous
  Country: KR (occurrence: KR)
  Receive Date: 20220513
  Receipt Date: 20220513
  Transmission Date: 20220721
  Serious: Yes (Other)
  Sender: FDA-Public Use
  Company Number: KR-PFIZER INC-202200647468

PATIENT
  Age: 10 Year
  Sex: Female

DRUGS (1)
  1. GENOTROPIN [Suspect]
     Active Substance: SOMATROPIN
     Dosage: 3.2 IU, CYCLIC (4-WEEK CYCLE AS 6 TIMES A WEEK FOR 3 WEEKS AND THEN 7 TIMES A WEEK)
     Dates: start: 20211119

REACTIONS (2)
  - Chest discomfort [Unknown]
  - Tachycardia paroxysmal [Unknown]

NARRATIVE: CASE EVENT DATE: 20220427
